FAERS Safety Report 7594338-7 (Version None)
Quarter: 2011Q3

REPORT INFORMATION
  Report Type: 
  Country: None (occurrence: None)
  Receive Date: 20110706
  Receipt Date: 20110630
  Transmission Date: 20111222
  Serious: Yes (Life-Threatening, Hospitalization)
  Sender: FDA-Public Use
  Company Number: ES-BRISTOL-MYERS SQUIBB COMPANY-14758692

PATIENT
  Age: 68 Year
  Sex: Male
  Weight: 74 kg

DRUGS (11)
  1. ASPIRIN [Concomitant]
  2. BISOPROLOL FUMARATE [Concomitant]
  3. OMEPRAZOLE [Concomitant]
  4. CETUXIMAB [Suspect]
     Indication: NON-SMALL CELL LUNG CANCER
     Dosage: CETUXIMAB 5MG/ML;RECENT INF-11AUG09 INTERRUPTED ON 21AUG09
     Route: 042
     Dates: start: 20090804, end: 20090821
  5. DEXAMETHASONE [Concomitant]
  6. CISPLATIN [Suspect]
     Indication: NON-SMALL CELL LUNG CANCER
     Dosage: 3.5714 MG/M2;INTERRUPTED ON 21AUG09;CYCLICAL.
     Route: 042
     Dates: start: 20090804, end: 20090821
  7. APREPITANT [Concomitant]
  8. METOCLOPRAMIDE HYDROCHLORIDE [Concomitant]
  9. GEMCITABINE [Suspect]
     Indication: NON-SMALL CELL LUNG CANCER
     Dosage: ON DAY 1, 8 OF 21 DAY CYCLE;RECENT INF-11AUG09;INTERRUPTED ON 21AUG09
     Route: 042
     Dates: start: 20090804, end: 20090821
  10. METFORMIN HCL [Concomitant]
  11. ONDANSETRON [Concomitant]

REACTIONS (3)
  - NEUTROPENIA [None]
  - LOWER RESPIRATORY TRACT INFECTION [None]
  - PLATELET COUNT DECREASED [None]
